FAERS Safety Report 9631597 (Version 1)
Quarter: 2013Q4

REPORT INFORMATION
  Report Type: Spontaneous
  Country: US (occurrence: US)
  Receive Date: 20131018
  Receipt Date: 20131018
  Transmission Date: 20140711
  Serious: No
  Sender: FDA-Public Use
  Company Number: US-PFIZER INC-2013298056

PATIENT
  Age: 52 Year
  Sex: Female
  Weight: 49.89 kg

DRUGS (2)
  1. LYRICA [Suspect]
     Indication: FIBROMYALGIA
     Dosage: 150 MG, DAILY
     Dates: end: 201310
  2. MORPHINE SULFATE [Suspect]
     Indication: PAIN
     Dosage: 30 MG, 4X/DAY

REACTIONS (1)
  - Drug ineffective [Unknown]
